FAERS Safety Report 24046388 (Version 1)
Quarter: 2024Q3

REPORT INFORMATION
  Report Type: Spontaneous
  Country: US (occurrence: US)
  Receive Date: 20240703
  Receipt Date: 20240703
  Transmission Date: 20241017
  Serious: No
  Sender: BAYER
  Company Number: US-BAYER-2024A092484

PATIENT
  Age: 7 Year
  Sex: Female

DRUGS (1)
  1. KOVALTRY [Suspect]
     Active Substance: ANTIHEMOPHILIC FACTOR, HUMAN RECOMBINANT
     Dosage: 516 UNITS/645 UNITS/1032 UNITS/1290 UNITS

REACTIONS (1)
  - Fall [None]

NARRATIVE: CASE EVENT DATE: 20240624
